FAERS Safety Report 17382983 (Version 5)
Quarter: 2020Q3

REPORT INFORMATION
  Report Type: Spontaneous
  Country: US (occurrence: US)
  Receive Date: 20200206
  Receipt Date: 20200917
  Transmission Date: 20201102
  Serious: Yes (Other)
  Sender: FDA-Public Use
  Company Number: US-PFIZER INC-2020054338

PATIENT
  Age: 49 Year
  Sex: Female

DRUGS (4)
  1. IBRANCE [Suspect]
     Active Substance: PALBOCICLIB
     Dosage: 100 MG, CYCLIC (100MG DAILY DAY 1?21 OF 28 DAY CYCLE)
     Route: 048
     Dates: start: 202002, end: 2020
  2. IBRANCE [Suspect]
     Active Substance: PALBOCICLIB
     Dosage: UNK (LOWERED DOSE)
     Route: 048
     Dates: start: 2020, end: 2020
  3. IBRANCE [Suspect]
     Active Substance: PALBOCICLIB
     Dosage: 125 MG, CYCLIC (DAILY DAY 1?21 OF 28 DAY CYCLE)
     Dates: start: 2020, end: 2020
  4. IBRANCE [Suspect]
     Active Substance: PALBOCICLIB
     Indication: BREAST CANCER FEMALE
     Dosage: 100 MG, CYCLIC (21 DAYS ON, SEVEN DAYS OFF)
     Route: 048
     Dates: start: 20200130, end: 2020

REACTIONS (12)
  - Hepatic enzyme abnormal [Unknown]
  - Alopecia [Not Recovered/Not Resolved]
  - White blood cell count decreased [Not Recovered/Not Resolved]
  - Neutrophil count decreased [Not Recovered/Not Resolved]
  - Hyperkalaemia [Recovered/Resolved]
  - White blood cell count abnormal [Unknown]
  - Peripheral swelling [Unknown]
  - Pain in extremity [Unknown]
  - Sleep disorder [Unknown]
  - Abdominal pain upper [Unknown]
  - Fatigue [Unknown]
  - Blood count abnormal [Unknown]

NARRATIVE: CASE EVENT DATE: 2020
